FAERS Safety Report 4578569-6 (Version None)
Quarter: 2005Q1

REPORT INFORMATION
  Report Type: 
  Country: None (occurrence: None)
  Receive Date: 20050207
  Receipt Date: 20050207
  Transmission Date: 20050727
  Serious: Yes (Life-Threatening, Hospitalization)
  Sender: FDA-Public Use
  Company Number: None

PATIENT
  Sex: Female
  Weight: 68.9467 kg

DRUGS (11)
  1. TEQUIN [Suspect]
     Indication: BRONCHITIS
     Dosage: 400MG PO DAILY
     Route: 048
     Dates: start: 20041230, end: 20050112
  2. ENTEX LA [Concomitant]
  3. FLOVENT [Concomitant]
  4. ALBUTEROL [Concomitant]
  5. SINGULAIR [Concomitant]
  6. ALDACTONE [Concomitant]
  7. ATENOLOL [Concomitant]
  8. COLACE [Concomitant]
  9. SUDAFED 12 HOUR [Concomitant]
  10. PROVENTIL [Concomitant]
  11. COMPAZINE [Concomitant]

REACTIONS (6)
  - BLOOD GLUCOSE INCREASED [None]
  - DEPRESSED LEVEL OF CONSCIOUSNESS [None]
  - POLYDIPSIA [None]
  - POLYURIA [None]
  - TREATMENT NONCOMPLIANCE [None]
  - VERTIGO [None]
